FAERS Safety Report 14180493 (Version 1)
Quarter: 2017Q4

REPORT INFORMATION
  Report Type: Spontaneous
  Country: ES (occurrence: ES)
  Receive Date: 20171111
  Receipt Date: 20171111
  Transmission Date: 20180321
  Serious: Yes (Other)
  Sender: FDA-Public Use
  Company Number: ES-TEVA-824037ISR

PATIENT
  Age: 83 Year
  Sex: Female

DRUGS (1)
  1. GABAPENTINA TEVA 100 MG CAPSULAS DURAS [Suspect]
     Active Substance: GABAPENTIN
     Dosage: 100 MILLIGRAM DAILY;
     Route: 048
     Dates: start: 20171025, end: 20171127

REACTIONS (3)
  - Hypertensive crisis [Recovered/Resolved]
  - Wrong drug administered [None]
  - Drug dispensing error [None]

NARRATIVE: CASE EVENT DATE: 20171027
